FAERS Safety Report 12308243 (Version 1)
Quarter: 2016Q2

REPORT INFORMATION
  Report Type: Spontaneous
  Country: FR (occurrence: FR)
  Receive Date: 20160426
  Receipt Date: 20160426
  Transmission Date: 20160815
  Serious: Yes (Hospitalization)
  Sender: FDA-Public Use
  Company Number: FR-ASTRAZENECA-2016SE43033

PATIENT
  Age: 40 Year
  Sex: Female

DRUGS (13)
  1. COVERSYL [Suspect]
     Active Substance: PERINDOPRIL
     Route: 048
  2. XGEVA [Suspect]
     Active Substance: DENOSUMAB
     Indication: BONE GIANT CELL TUMOUR MALIGNANT
     Route: 058
     Dates: start: 20141215, end: 20160111
  3. ZOPICLONE [Suspect]
     Active Substance: ZOPICLONE
     Route: 048
  4. LEVOTHYROX [Suspect]
     Active Substance: LEVOTHYROXINE
     Route: 065
  5. SEROPLEX [Suspect]
     Active Substance: ESCITALOPRAM OXALATE
     Route: 048
  6. AMLOR [Suspect]
     Active Substance: AMLODIPINE BESYLATE
     Route: 048
  7. DAFALGAN [Suspect]
     Active Substance: ACETAMINOPHEN
     Route: 048
  8. MONURIL [Suspect]
     Active Substance: FOSFOMYCIN SODIUM
     Indication: URINARY TRACT INFECTION
     Route: 048
     Dates: start: 20160117, end: 20160117
  9. TRAMADOL. [Concomitant]
     Active Substance: TRAMADOL
     Indication: PAIN
     Route: 048
  10. INEXIUM [Suspect]
     Active Substance: ESOMEPRAZOLE
     Route: 048
  11. CORTANCYL [Suspect]
     Active Substance: PREDNISONE
     Dosage: FROM 20MG TO 60MG ONCE IN THE MORNING
     Route: 048
     Dates: start: 2010
  12. PREVISCAN [Suspect]
     Active Substance: FLUINDIONE
     Indication: PULMONARY EMBOLISM
     Route: 048
  13. FENOFIBRATE. [Suspect]
     Active Substance: FENOFIBRATE
     Indication: HYPERTRIGLYCERIDAEMIA
     Route: 048

REACTIONS (6)
  - Chemical peritonitis [Unknown]
  - Cholecystitis infective [Recovered/Resolved]
  - Melaena [Unknown]
  - Sciatica [Unknown]
  - Colitis [Recovered/Resolved]
  - Lung disorder [Unknown]

NARRATIVE: CASE EVENT DATE: 20160105
